FAERS Safety Report 22293554 (Version 22)
Quarter: 2024Q4

REPORT INFORMATION
  Report Type: Spontaneous
  Country: DE (occurrence: DE)
  Receive Date: 20230508
  Receipt Date: 20241211
  Transmission Date: 20250115
  Serious: Yes (Hospitalization, Other)
  Sender: GLAXOSMITHKLINE
  Company Number: DE-GSKCCFEMEA-Case-01721269_AE-70294

PATIENT

DRUGS (16)
  1. ZEJULA [Interacting]
     Active Substance: NIRAPARIB
     Indication: Ovarian cancer
     Dosage: 100 MG
     Route: 048
     Dates: start: 20230427
  2. ZEJULA [Interacting]
     Active Substance: NIRAPARIB
     Dosage: 50 MG
     Dates: start: 20230508
  3. ZEJULA [Interacting]
     Active Substance: NIRAPARIB
     Dosage: 75 MG
  4. ZEJULA [Interacting]
     Active Substance: NIRAPARIB
     Dosage: 100 MG
  5. ZEJULA [Interacting]
     Active Substance: NIRAPARIB
     Dosage: 125 MG
  6. ZEJULA [Interacting]
     Active Substance: NIRAPARIB
     Dosage: 150 MG, QD
  7. ZEJULA [Interacting]
     Active Substance: NIRAPARIB
     Dosage: 175 MG
  8. ZEJULA [Interacting]
     Active Substance: NIRAPARIB
     Dosage: 190 MG, QD
  9. ZEJULA [Interacting]
     Active Substance: NIRAPARIB
     Dosage: 200 MG, QD
  10. ZEJULA [Interacting]
     Active Substance: NIRAPARIB
     Dosage: 150 MG, QD
  11. ZEJULA [Interacting]
     Active Substance: NIRAPARIB
     Dosage: UNK
     Dates: start: 20240405
  12. ROSUVASTATIN [Interacting]
     Active Substance: ROSUVASTATIN
     Indication: Blood cholesterol increased
     Dosage: 5 MG,OCCASIONALLY
  13. ROSUVASTATIN [Interacting]
     Active Substance: ROSUVASTATIN
     Dosage: 50 MG (RARELY)
  14. DEKRISTOLVIT D3 [Concomitant]
     Indication: Product used for unknown indication
     Dosage: UNK (20000)
  15. ACLASTA [Concomitant]
     Active Substance: ZOLEDRONIC ACID
     Indication: Product used for unknown indication
     Dosage: UNK
  16. ASPIRIN [Concomitant]
     Active Substance: ASPIRIN
     Indication: Product used for unknown indication
     Dosage: 50 MG

REACTIONS (54)
  - Sudden hearing loss [Recovered/Resolved]
  - Neuropathy peripheral [Recovered/Resolved]
  - Cerebrovascular accident [Recovered/Resolved]
  - Red blood cell count decreased [Unknown]
  - Platelet count increased [Unknown]
  - Blood cholesterol increased [Unknown]
  - Drug interaction [Unknown]
  - Restlessness [Unknown]
  - Dyspnoea [Unknown]
  - Blood pressure increased [Not Recovered/Not Resolved]
  - Insomnia [Unknown]
  - Blood pressure fluctuation [Unknown]
  - Disturbance in attention [Unknown]
  - Headache [Not Recovered/Not Resolved]
  - Dizziness [Unknown]
  - Hyperhidrosis [Unknown]
  - Nausea [Unknown]
  - Heart rate abnormal [Recovering/Resolving]
  - Vision blurred [Recovered/Resolved]
  - Seroma [Unknown]
  - Hypoacusis [Recovered/Resolved]
  - Cardiac murmur [Recovered/Resolved]
  - Fatigue [Not Recovered/Not Resolved]
  - Musculoskeletal chest pain [Not Recovered/Not Resolved]
  - Condition aggravated [Unknown]
  - Gastric dilatation [Unknown]
  - Abdominal distension [Unknown]
  - Blood alkaline phosphatase increased [Recovering/Resolving]
  - Liver disorder [Unknown]
  - Abdominal discomfort [Unknown]
  - Abdominal pain upper [Recovered/Resolved]
  - Gastrointestinal pain [Recovered/Resolved]
  - Weight decreased [Unknown]
  - Agitation [Unknown]
  - Incisional hernia [Unknown]
  - Depression [Unknown]
  - Sleep disorder [Unknown]
  - Palpitations [Unknown]
  - Gamma-glutamyltransferase increased [Unknown]
  - Blood albumin increased [Recovering/Resolving]
  - Blood calcium increased [Recovering/Resolving]
  - COVID-19 [Unknown]
  - Pyrexia [Unknown]
  - Arthralgia [Recovered/Resolved]
  - Myalgia [Recovered/Resolved]
  - Pain in extremity [Recovered/Resolved]
  - Hypertension [Unknown]
  - Osteoporosis [Recovering/Resolving]
  - Anaemia [Unknown]
  - Weight increased [Unknown]
  - Blood alkaline phosphatase increased [Recovering/Resolving]
  - Tumour marker increased [Recovering/Resolving]
  - Off label use [Unknown]
  - Wrong technique in product usage process [Unknown]
